FAERS Safety Report 22022025 (Version 2)
Quarter: 2023Q2

REPORT INFORMATION
  Report Type: Spontaneous
  Country: US (occurrence: US)
  Receive Date: 20230222
  Receipt Date: 20230403
  Transmission Date: 20230721
  Serious: Yes (Hospitalization, Other)
  Sender: FDA-Public Use
  Company Number: US-BoehringerIngelheim-2023-BI-219204

PATIENT
  Sex: Female

DRUGS (1)
  1. SPIRIVA HANDIHALER [Suspect]
     Active Substance: TIOTROPIUM BROMIDE MONOHYDRATE
     Indication: Product used for unknown indication
     Dates: start: 2009

REACTIONS (9)
  - Myocardial infarction [Unknown]
  - Pulmonary embolism [Unknown]
  - Lung disorder [Unknown]
  - Vocal cord disorder [Unknown]
  - Dry throat [Unknown]
  - Drug ineffective [Unknown]
  - Dysphonia [Unknown]
  - Foreign body in throat [Unknown]
  - Product quality issue [Unknown]

NARRATIVE: CASE EVENT DATE: 20090101
